FAERS Safety Report 20850327 (Version 1)
Quarter: 2022Q2

REPORT INFORMATION
  Report Type: Spontaneous
  Country: US (occurrence: US)
  Receive Date: 20220519
  Receipt Date: 20220519
  Transmission Date: 20220721
  Serious: Yes (Other)
  Sender: FDA-Public Use
  Company Number: US-GLAXOSMITHKLINE-US2022AMR077433

PATIENT

DRUGS (1)
  1. LAMICTAL [Suspect]
     Active Substance: LAMOTRIGINE
     Indication: Bipolar disorder
     Dosage: UNK

REACTIONS (11)
  - Facial paralysis [Unknown]
  - Tinnitus [Unknown]
  - Extrapyramidal disorder [Unknown]
  - Muscle twitching [Unknown]
  - Restless legs syndrome [Unknown]
  - Sexual dysfunction [Unknown]
  - Dyskinesia [Unknown]
  - Bruxism [Unknown]
  - Salivary hypersecretion [Unknown]
  - Breath sounds abnormal [Unknown]
  - Therapy partial responder [Unknown]
